FAERS Safety Report 4312434-4 (Version None)
Quarter: 2004Q1

REPORT INFORMATION
  Report Type: 
  Country: None (occurrence: None)
  Receive Date: 20040302
  Receipt Date: 20031221
  Transmission Date: 20041129
  Serious: Yes (Other)
  Sender: FDA-Public Use
  Company Number: 200330804BWH

PATIENT
  Sex: Male

DRUGS (3)
  1. LEVITRA [Suspect]
     Indication: ERECTILE DYSFUNCTION
  2. ORAL HYPOGLYCEMIC MEDICATION #1 [Concomitant]
  3. ORAL HYPOGLYCEMIC MEDICATION #2 [Concomitant]

REACTIONS (2)
  - ERYTHEMA [None]
  - HYPOTENSION [None]
